FAERS Safety Report 14516456 (Version 1)
Quarter: 2018Q1

REPORT INFORMATION
  Report Type: Report from Study
  Country: None (occurrence: AU)
  Receive Date: 20180212
  Receipt Date: 20180212
  Transmission Date: 20180509
  Serious: Yes (Hospitalization, Other)
  Sender: FDA-Public Use
  Company Number: AU-ABBVIE-17K-008-2137124-00

PATIENT
  Sex: Male

DRUGS (1)
  1. HUMIRA [Suspect]
     Active Substance: ADALIMUMAB
     Indication: COLITIS ULCERATIVE
     Route: 058

REACTIONS (13)
  - Drug effect incomplete [Unknown]
  - Flatulence [Unknown]
  - Hypophagia [Unknown]
  - Depression [Unknown]
  - Suicidal ideation [Unknown]
  - Dyschezia [Unknown]
  - Frequent bowel movements [Unknown]
  - Anal haemorrhage [Unknown]
  - Haematochezia [Not Recovered/Not Resolved]
  - Hospitalisation [Unknown]
  - Proctalgia [Unknown]
  - Asthenia [Unknown]
  - Diarrhoea [Unknown]
